FAERS Safety Report 7126453-6 (Version None)
Quarter: 2010Q4

REPORT INFORMATION
  Report Type: 
  Country: None (occurrence: None)
  Receive Date: 20101129
  Receipt Date: 20101115
  Transmission Date: 20110411
  Serious: Yes (Hospitalization, Other)
  Sender: FDA-Public Use
  Company Number: DE-CELGENEUS-062-50794-10101433

PATIENT
  Sex: Female

DRUGS (2)
  1. VIDAZA [Suspect]
     Route: 050
  2. MEDROXYPROGESTERONE [Concomitant]
     Route: 065

REACTIONS (7)
  - CATHETER SITE INFECTION [None]
  - ENDOMETRIAL CANCER [None]
  - FEBRILE NEUTROPENIA [None]
  - NEUTROPENIA [None]
  - NEUTROPENIC INFECTION [None]
  - PNEUMONIA FUNGAL [None]
  - VAGINAL HAEMORRHAGE [None]
